FAERS Safety Report 6546521-7 (Version None)
Quarter: 2010Q1

REPORT INFORMATION
  Report Type: 
  Country: None (occurrence: None)
  Receive Date: 20100119
  Receipt Date: 20091229
  Transmission Date: 20100710
  Serious: No
  Sender: FDA-Public Use
  Company Number: 2009-00923

PATIENT
  Age: 44 Year
  Sex: Male
  Weight: 97.0698 kg

DRUGS (6)
  1. COLD REMEDY RAPID MELTS [Suspect]
     Dosage: Q 3 HRS - USED 21 TABLETS
     Dates: start: 20091227
  2. LISINOPRIL [Concomitant]
  3. AMITRIPTYLINE HCL [Concomitant]
  4. IMMITREX [Concomitant]
  5. HALL'S MENTHOLATED COUGH DROPS [Concomitant]
  6. CLORASEPTIC THROAT DISCS [Concomitant]

REACTIONS (1)
  - AGEUSIA [None]
